FAERS Safety Report 16251233 (Version 4)
Quarter: 2020Q1

REPORT INFORMATION
  Report Type: Spontaneous
  Country: US (occurrence: US)
  Receive Date: 20190429
  Receipt Date: 20200303
  Transmission Date: 20200409
  Serious: Yes (Hospitalization)
  Sender: FDA-Public Use
  Company Number: US-PFIZER INC-2019144542

PATIENT
  Age: 69 Year
  Sex: Male
  Weight: 69 kg

DRUGS (11)
  1. VFEND [Suspect]
     Active Substance: VORICONAZOLE
     Dosage: 250 MG, 2X/DAY (200MG; 1 TABLET TWICE A DAY WITH 50MG; 1 TABLET TWICE A DAY)
  2. VFEND [Suspect]
     Active Substance: VORICONAZOLE
     Indication: LOCALISED INFECTION
  3. VFEND [Suspect]
     Active Substance: VORICONAZOLE
     Indication: FUNGAL INFECTION
     Dosage: UNK
     Route: 042
  4. VFEND [Suspect]
     Active Substance: VORICONAZOLE
     Indication: ACUTE MYELOID LEUKAEMIA
     Dosage: 300 MG, 2X/DAY
     Route: 048
     Dates: start: 20190323
  5. VFEND [Suspect]
     Active Substance: VORICONAZOLE
     Indication: ACUTE MYELOID LEUKAEMIA
  6. VFEND [Suspect]
     Active Substance: VORICONAZOLE
     Indication: PULMONARY MASS
     Dosage: 100 MG, 2X/DAY
     Route: 048
  7. VFEND [Suspect]
     Active Substance: VORICONAZOLE
     Dosage: 300 MG, 2X/DAY
     Dates: end: 20190531
  8. VFEND [Suspect]
     Active Substance: VORICONAZOLE
     Indication: PULMONARY MASS
  9. DOXYCYCLINE. [Concomitant]
     Active Substance: DOXYCYCLINE
     Dosage: UNK
     Dates: end: 20190420
  10. VFEND [Suspect]
     Active Substance: VORICONAZOLE
     Indication: FUNGAL INFECTION
     Dosage: 250 MG, 2X/DAY
     Route: 048
  11. VFEND [Suspect]
     Active Substance: VORICONAZOLE
     Indication: LOCALISED INFECTION
     Dosage: 200 MG, 2X/DAY
     Route: 048

REACTIONS (1)
  - Pyrexia [Recovered/Resolved]

NARRATIVE: CASE EVENT DATE: 20190208
